FAERS Safety Report 17518126 (Version 1)
Quarter: 2020Q1

REPORT INFORMATION
  Report Type: Spontaneous
  Country: ES (occurrence: ES)
  Receive Date: 20200309
  Receipt Date: 20200309
  Transmission Date: 20200409
  Serious: Yes (Other)
  Sender: FDA-Public Use
  Company Number: ES-MYLANLABS-2020M1024025

PATIENT
  Age: 11 Year
  Sex: Male

DRUGS (10)
  1. CARBOPLATIN. [Concomitant]
     Active Substance: CARBOPLATIN
     Indication: NONGERMINOMATOUS GERM CELL TUMOUR OF THE CNS
  2. CARBOPLATIN. [Concomitant]
     Active Substance: CARBOPLATIN
     Indication: IMMUNOSUPPRESSANT DRUG THERAPY
     Dosage: UNK UNK, CYCLE
     Route: 065
  3. GEMCITABINE. [Suspect]
     Active Substance: GEMCITABINE
     Indication: NONGERMINOMATOUS GERM CELL TUMOUR OF THE CNS
     Dosage: UNK (ONE MORE GEMPOX TREATMENT)
     Route: 065
  4. OXALIPLATIN. [Suspect]
     Active Substance: OXALIPLATIN
     Indication: NONGERMINOMATOUS GERM CELL TUMOUR OF THE CNS
  5. GEMCITABINE. [Suspect]
     Active Substance: GEMCITABINE
     Indication: IMMUNOSUPPRESSANT DRUG THERAPY
  6. PACLITAXEL. [Suspect]
     Active Substance: PACLITAXEL
     Indication: NONGERMINOMATOUS GERM CELL TUMOUR OF THE CNS
     Dosage: UNK (ONE MORE GEMPOX TREATMENT)
     Route: 065
  7. THIOTEPA. [Concomitant]
     Active Substance: THIOTEPA
     Indication: IMMUNOSUPPRESSANT DRUG THERAPY
     Dosage: UNK UNK, CYCLE
     Route: 065
  8. THIOTEPA. [Concomitant]
     Active Substance: THIOTEPA
     Indication: NONGERMINOMATOUS GERM CELL TUMOUR OF THE CNS
  9. OXALIPLATIN. [Suspect]
     Active Substance: OXALIPLATIN
     Indication: IMMUNOSUPPRESSANT DRUG THERAPY
     Dosage: UNK (ONE MORE GEMPOX TREATMENT)
     Route: 065
  10. PACLITAXEL. [Suspect]
     Active Substance: PACLITAXEL
     Indication: IMMUNOSUPPRESSANT DRUG THERAPY

REACTIONS (3)
  - Neutropenia [Unknown]
  - Product use in unapproved indication [Unknown]
  - Off label use [Unknown]
